FAERS Safety Report 11662944 (Version 3)
Quarter: 2015Q4

REPORT INFORMATION
  Report Type: Report from Study
  Country: TR (occurrence: TR)
  Receive Date: 20151027
  Receipt Date: 20151218
  Transmission Date: 20160304
  Serious: Yes (Disabling)
  Sender: FDA-Public Use
  Company Number: TR-009507513-1510TUR012256

PATIENT
  Age: 58 Year
  Sex: Female

DRUGS (3)
  1. MEGACE [Concomitant]
     Active Substance: MEGESTROL ACETATE
     Indication: MALNUTRITION
     Dosage: 160 MG, BID
     Route: 048
     Dates: start: 20150910
  2. PEMBROLIZUMAB. [Suspect]
     Active Substance: PEMBROLIZUMAB
     Indication: METASTATIC MALIGNANT MELANOMA
     Dosage: 2 MG/KG, Q3W
     Route: 042
     Dates: start: 20150727, end: 20150909
  3. DUPHALAC [Concomitant]
     Active Substance: LACTULOSE
     Indication: CONSTIPATION
     Dosage: TOTAL DAILY DOSE. 650 MG, TID
     Route: 048
     Dates: start: 20150727

REACTIONS (3)
  - Blood bilirubin increased [Recovering/Resolving]
  - General physical health deterioration [Not Recovered/Not Resolved]
  - Hepatic enzyme increased [Recovering/Resolving]

NARRATIVE: CASE EVENT DATE: 20150923
